FAERS Safety Report 5605983-X (Version None)
Quarter: 2008Q1

REPORT INFORMATION
  Report Type: 
  Country: None (occurrence: None)
  Receive Date: 20080129
  Receipt Date: 20071120
  Transmission Date: 20080703
  Serious: No
  Sender: FDA-Public Use
  Company Number: US-AMGEN-US253452

PATIENT
  Sex: Male

DRUGS (2)
  1. VECTIBIX [Suspect]
     Indication: COLORECTAL CANCER
     Route: 065
     Dates: start: 20070901
  2. XELODA [Concomitant]
     Route: 065

REACTIONS (8)
  - DRY SKIN [None]
  - ERYTHEMA [None]
  - EYELID PAIN [None]
  - INSOMNIA [None]
  - PRURITUS [None]
  - RASH MORBILLIFORM [None]
  - SKIN TIGHTNESS [None]
  - SWELLING FACE [None]
